FAERS Safety Report 9586902 (Version 1)
Quarter: 2013Q4

REPORT INFORMATION
  Report Type: Spontaneous
  Country: US (occurrence: None)
  Receive Date: 20131002
  Receipt Date: 20131002
  Transmission Date: 20140711
  Serious: No
  Sender: FDA-Public Use
  Company Number: DL2013-0504

PATIENT
  Age: 29 Year
  Sex: Female

DRUGS (3)
  1. MIFEPRISTONE TABLETS, 200 MG (DANCO LABS) [Suspect]
     Indication: ABORTION INDUCED
     Route: 048
     Dates: start: 20130419
  2. MISOPROSTOL TABLETS, 200 MCG [Suspect]
     Route: 002
     Dates: start: 20130420
  3. ZITHROMAX [Concomitant]

REACTIONS (1)
  - Abortion incomplete [None]
